FAERS Safety Report 20717483 (Version 1)
Quarter: 2022Q2

REPORT INFORMATION
  Report Type: Spontaneous
  Country: ES (occurrence: ES)
  Receive Date: 20220417
  Receipt Date: 20220417
  Transmission Date: 20220721
  Serious: Yes (Other)
  Sender: FDA-Public Use
  Company Number: None

PATIENT
  Age: 56 Year
  Sex: Female

DRUGS (7)
  1. ENALAPRIL MALEATE [Suspect]
     Active Substance: ENALAPRIL MALEATE
     Indication: Hypertension
     Dosage: 2.5 MG, STRENGTH: 2.5 MG, 10 TABLETS
     Route: 048
     Dates: start: 20220303
  2. FLUTICASONE FUROATE [Concomitant]
     Active Substance: FLUTICASONE FUROATE
     Indication: Hypersensitivity
     Dosage: 55.0 MCG C/12 H,AVAMYS 27.5 MICROGRAMS/SPRAY,1 BOTTLE OF 120 SPRAYS
     Route: 045
     Dates: start: 20160805
  3. EBASTINE CINFA [Concomitant]
     Indication: Hypersensitivity
     Dosage: 20.0 MG DE, STRENGTH 20MG, 20 TABLETS
     Route: 048
     Dates: start: 20171219
  4. XOLAIR [Concomitant]
     Active Substance: OMALIZUMAB
     Indication: Asthma
     Dosage: 450.0 MG EVERY 14 DAYS, STRENGTH: 150 MG , 1 PRE-FILLED SYRINGE OF 1 ML
     Route: 058
     Dates: start: 20200723
  5. FLUTICASONE FUROATE\VILANTEROL TRIFENATATE [Concomitant]
     Active Substance: FLUTICASONE FUROATE\VILANTEROL TRIFENATATE
     Indication: Hypersensitivity
     Dosage: 2.0 PUFF C/24 H,RELVAR ELLIPTA 184 MCG/22 MCG POWDER FOR INHALATION (UNIDOSE) 30 DOSES
     Route: 050
     Dates: start: 20151112
  6. MONTELUKAST CINFA [Concomitant]
     Indication: Bronchitis
     Dosage: 10.0 MG C/24 H NOC,STRENGTH 10 MG, 28 TABLETS
     Route: 048
     Dates: start: 20160804
  7. TERMALDINE CODEINE [Concomitant]
     Indication: Arthralgia
     Dosage: 1.0 CAPS EVERY 6 HOURS, TERMALDINE CODEINE 300 MG/ 15 MG, 20 CAPSULES,DURATION 6 DAYS
     Route: 048
     Dates: start: 20220302, end: 20220308

REACTIONS (1)
  - Tachycardia [Recovering/Resolving]

NARRATIVE: CASE EVENT DATE: 20220305
